FAERS Safety Report 5059824-2 (Version None)
Quarter: 2006Q3

REPORT INFORMATION
  Report Type: 
  Country: None (occurrence: None)
  Receive Date: 20060724
  Receipt Date: 20060320
  Transmission Date: 20061208
  Serious: Yes (Hospitalization)
  Sender: FDA-Public Use
  Company Number: FR-JNJFOC-20060703747

PATIENT
  Age: 38 Year
  Sex: Female

DRUGS (4)
  1. IXPRIM [Suspect]
     Indication: PAIN
     Route: 048
  2. TERALITHE [Suspect]
     Indication: BIPOLAR I DISORDER
     Route: 048
  3. ACUPAN [Suspect]
     Indication: PAIN
     Route: 042
  4. NSAIDS [Concomitant]
     Route: 065

REACTIONS (2)
  - DRUG LEVEL INCREASED [None]
  - MANIA [None]
